FAERS Safety Report 13286891 (Version 5)
Quarter: 2017Q3

REPORT INFORMATION
  Report Type: Report from Study
  Country: US (occurrence: US)
  Receive Date: 20170302
  Receipt Date: 20170728
  Transmission Date: 20171127
  Serious: Yes (Other)
  Sender: FDA-Public Use
  Company Number: US-JNJFOC-20151208748

PATIENT
  Age: 56 Year
  Sex: Female

DRUGS (25)
  1. IMBRUVICA [Suspect]
     Active Substance: IBRUTINIB
     Indication: CHRONIC LYMPHOCYTIC LEUKAEMIA
     Route: 048
     Dates: start: 20151028, end: 201603
  2. ESCITALOPRAM [Concomitant]
     Active Substance: ESCITALOPRAM OXALATE
  3. COLACE [Concomitant]
     Active Substance: DOCUSATE SODIUM
  4. IMBRUVICA [Suspect]
     Active Substance: IBRUTINIB
     Indication: CHRONIC LYMPHOCYTIC LEUKAEMIA
     Route: 048
     Dates: start: 20170412
  5. IMBRUVICA [Suspect]
     Active Substance: IBRUTINIB
     Indication: CHRONIC LYMPHOCYTIC LEUKAEMIA
     Route: 048
     Dates: start: 201604
  6. HYDROMORPHONE [Concomitant]
     Active Substance: HYDROMORPHONE
  7. DULOXETINE. [Concomitant]
     Active Substance: DULOXETINE
  8. LINACLOTIDE [Concomitant]
     Active Substance: LINACLOTIDE
  9. IMBRUVICA [Suspect]
     Active Substance: IBRUTINIB
     Indication: CHRONIC LYMPHOCYTIC LEUKAEMIA
     Route: 048
     Dates: start: 20151126
  10. IRON [Concomitant]
     Active Substance: IRON
  11. NEXIUM [Concomitant]
     Active Substance: ESOMEPRAZOLE MAGNESIUM
  12. IMBRUVICA [Suspect]
     Active Substance: IBRUTINIB
     Indication: CHRONIC LYMPHOCYTIC LEUKAEMIA
     Route: 048
     Dates: start: 20161216
  13. IMBRUVICA [Suspect]
     Active Substance: IBRUTINIB
     Indication: CHRONIC LYMPHOCYTIC LEUKAEMIA
     Route: 048
     Dates: start: 20151126
  14. GABAPENTIN. [Concomitant]
     Active Substance: GABAPENTIN
  15. PAXIL [Concomitant]
     Active Substance: PAROXETINE HYDROCHLORIDE
  16. LEXAPRO [Concomitant]
     Active Substance: ESCITALOPRAM OXALATE
  17. IMBRUVICA [Suspect]
     Active Substance: IBRUTINIB
     Indication: CHRONIC LYMPHOCYTIC LEUKAEMIA
     Route: 048
     Dates: start: 201604, end: 201604
  18. DIAZEPAM. [Concomitant]
     Active Substance: DIAZEPAM
  19. IMBRUVICA [Suspect]
     Active Substance: IBRUTINIB
     Indication: CHRONIC LYMPHOCYTIC LEUKAEMIA
     Route: 048
     Dates: start: 201604, end: 201604
  20. RESTASIS [Concomitant]
     Active Substance: CYCLOSPORINE
  21. LINZESS [Concomitant]
     Active Substance: LINACLOTIDE
  22. CLONAZEPAM. [Concomitant]
     Active Substance: CLONAZEPAM
  23. KLONOPIN [Concomitant]
     Active Substance: CLONAZEPAM
  24. PREDNISONE. [Concomitant]
     Active Substance: PREDNISONE
  25. CARDIZEM [Concomitant]
     Active Substance: DILTIAZEM HYDROCHLORIDE

REACTIONS (36)
  - Malaise [Unknown]
  - Coronary artery occlusion [Unknown]
  - Procedural hypertension [Unknown]
  - Incorrect dose administered [Unknown]
  - Sjogren^s syndrome [Unknown]
  - Weight decreased [Unknown]
  - Atrial fibrillation [Unknown]
  - Urinary tract infection [Unknown]
  - Diarrhoea [Unknown]
  - Nausea [Unknown]
  - Pyrexia [Unknown]
  - Procedural haemorrhage [Unknown]
  - Hypotension [Unknown]
  - Drug dose omission [Unknown]
  - Mouth swelling [Unknown]
  - Anxiety [Unknown]
  - Fungal infection [Unknown]
  - Surgery [Unknown]
  - Granuloma [Unknown]
  - Headache [Unknown]
  - Decreased appetite [Unknown]
  - Fatigue [Unknown]
  - Ejection fraction decreased [Unknown]
  - Migraine [Unknown]
  - Visual impairment [Unknown]
  - Dry eye [Unknown]
  - Constipation [Unknown]
  - Epistaxis [Unknown]
  - Gastrointestinal disorder [Unknown]
  - Dizziness [Recovering/Resolving]
  - Sinusitis [Not Recovered/Not Resolved]
  - Thrombosis [Unknown]
  - Off label use [Unknown]
  - Parathyroid disorder [Unknown]
  - Platelet count decreased [Unknown]
  - Infection [Unknown]

NARRATIVE: CASE EVENT DATE: 2015
